FAERS Safety Report 5523025-1 (Version None)
Quarter: 2007Q4

REPORT INFORMATION
  Report Type: 
  Country: None (occurrence: None)
  Receive Date: 20071116
  Receipt Date: 20071116
  Transmission Date: 20080405
  Serious: Yes (Other)
  Sender: FDA-Public Use
  Company Number: None

PATIENT
  Sex: Male

DRUGS (1)
  1. BACTRIM [Suspect]

REACTIONS (5)
  - HEPATITIS ACUTE [None]
  - HYPERBILIRUBINAEMIA [None]
  - LIVER INJURY [None]
  - RASH [None]
  - TRANSAMINASES INCREASED [None]
